FAERS Safety Report 5417998-5 (Version None)
Quarter: 2007Q3

REPORT INFORMATION
  Report Type: 
  Country: None (occurrence: None)
  Receive Date: 20070817
  Receipt Date: 20070621
  Transmission Date: 20080115
  Serious: No
  Sender: FDA-Public Use
  Company Number: A0659238A

PATIENT
  Age: 53 Year
  Sex: Female

DRUGS (2)
  1. VERAMYST [Suspect]
     Indication: MULTIPLE ALLERGIES
     Dosage: 2SPR AT NIGHT
     Route: 045
     Dates: start: 20070614, end: 20070617
  2. MULTIVITAMIN [Concomitant]

REACTIONS (4)
  - DYSPHAGIA [None]
  - LARYNGITIS [None]
  - PHARYNGOLARYNGEAL PAIN [None]
  - URTICARIA [None]
